FAERS Safety Report 6443837-X (Version None)
Quarter: 2009Q4

REPORT INFORMATION
  Report Type: 
  Country: None (occurrence: None)
  Receive Date: 20091113
  Receipt Date: 20091111
  Transmission Date: 20100525
  Serious: Yes (Other)
  Sender: FDA-Public Use
  Company Number: SP02607

PATIENT
  Age: 32 Year
  Sex: Male

DRUGS (1)
  1. MOVIPREP [Suspect]
     Indication: BOWEL PREPARATION
     Dosage: ORAL
     Route: 048

REACTIONS (3)
  - DYSPNOEA [None]
  - MUSCLE SPASMS [None]
  - RASH [None]
